FAERS Safety Report 24641142 (Version 1)
Quarter: 2024Q4

REPORT INFORMATION
  Report Type: Spontaneous
  Country: US (occurrence: US)
  Receive Date: 20241120
  Receipt Date: 20241120
  Transmission Date: 20250114
  Serious: Yes (Hospitalization, Other)
  Sender: SHENZHEN TECHDOW PHARMACEUTICAL
  Company Number: IN-Techdow-2024Techdow000219

PATIENT
  Age: 19 Year
  Sex: Female
  Weight: 86 kg

DRUGS (3)
  1. ENOXAPARIN SODIUM [Suspect]
     Active Substance: ENOXAPARIN SODIUM
     Indication: Cerebral venous sinus thrombosis
     Dosage: 1MG/KG,EVERY 12 HOURS
  2. ACETAZOLAMIDE [Concomitant]
     Active Substance: ACETAZOLAMIDE
     Dosage: 500MG,BID
  3. ACETAMINOPHEN\CODEINE PHOSPHATE [Concomitant]
     Active Substance: ACETAMINOPHEN\CODEINE PHOSPHATE
     Indication: Headache
     Dosage: UNKNOWN

REACTIONS (4)
  - Treatment failure [Unknown]
  - Subarachnoid haemorrhage [Recovering/Resolving]
  - Cranial nerve paralysis [Recovering/Resolving]
  - Superior sagittal sinus thrombosis [Recovered/Resolved]
